FAERS Safety Report 7527451-0 (Version None)
Quarter: 2011Q2

REPORT INFORMATION
  Report Type: 
  Country: None (occurrence: None)
  Receive Date: 20110603
  Receipt Date: 20110519
  Transmission Date: 20111010
  Serious: Yes (Death)
  Sender: FDA-Public Use
  Company Number: JPI-P-014788

PATIENT
  Age: 61 Year
  Sex: Female
  Weight: 54.8852 kg

DRUGS (3)
  1. XYREM [Suspect]
     Indication: NARCOLEPSY
     Dosage: 4.5 GM (2.25 GM,2 IN 1 D),ORAL
     Route: 048
     Dates: start: 20031001, end: 20041108
  2. METHYLPHENIDATE [Concomitant]
  3. BUPROPION HYDROCHLORIDE [Concomitant]

REACTIONS (1)
  - BREAST CANCER FEMALE [None]
